FAERS Safety Report 9386981 (Version 1)
Quarter: 2013Q3

REPORT INFORMATION
  Report Type: Spontaneous
  Country: FR (occurrence: FR)
  Receive Date: 20130708
  Receipt Date: 20130708
  Transmission Date: 20140515
  Serious: Yes (Hospitalization, Other)
  Sender: FDA-Public Use
  Company Number: FR-JNJFOC-20130619440

PATIENT
  Age: 57 Year
  Sex: Male

DRUGS (7)
  1. REMICADE [Suspect]
     Indication: PSORIASIS
     Route: 042
     Dates: start: 201302
  2. REMICADE [Suspect]
     Indication: PSORIASIS
     Route: 042
     Dates: start: 2008
  3. REMICADE [Suspect]
     Indication: PSORIATIC ARTHROPATHY
     Route: 042
     Dates: start: 2008
  4. REMICADE [Suspect]
     Indication: PSORIATIC ARTHROPATHY
     Route: 042
     Dates: start: 201302
  5. JANUMET [Concomitant]
     Route: 065
  6. PRETERAX [Concomitant]
     Route: 065
  7. ARAVA [Concomitant]
     Route: 065

REACTIONS (5)
  - Cardiac murmur [Unknown]
  - Inflammation [Unknown]
  - Dyspnoea exertional [Unknown]
  - Sinusitis [Recovered/Resolved]
  - Hip arthroplasty [Unknown]
